FAERS Safety Report 21668983 (Version 1)
Quarter: 2022Q4

REPORT INFORMATION
  Report Type: Spontaneous
  Country: US (occurrence: None)
  Receive Date: 20221201
  Receipt Date: 20221201
  Transmission Date: 20230113
  Serious: Yes (Other)
  Sender: FDA-Public Use
  Company Number: None

PATIENT
  Sex: 0

DRUGS (1)
  1. SPRYCEL [Suspect]
     Active Substance: DASATINIB

REACTIONS (7)
  - Nonspecific reaction [None]
  - Fall [None]
  - Head injury [None]
  - Concussion [None]
  - Dizziness [None]
  - Balance disorder [None]
  - Visual impairment [None]
